FAERS Safety Report 18957297 (Version 2)
Quarter: 2021Q2

REPORT INFORMATION
  Report Type: Report from Study
  Country: CO (occurrence: CO)
  Receive Date: 20210302
  Receipt Date: 20210408
  Transmission Date: 20210717
  Serious: Yes (Hospitalization)
  Sender: FDA-Public Use
  Company Number: NVSC2020CO182072

PATIENT
  Sex: Male
  Weight: 73 kg

DRUGS (5)
  1. GLIVEC [Suspect]
     Active Substance: IMATINIB MESYLATE
     Indication: CHRONIC MYELOID LEUKAEMIA
     Dosage: 400 MG, QD
     Route: 048
     Dates: start: 201408, end: 2015
  2. IMATINIB. [Suspect]
     Active Substance: IMATINIB MESYLATE
     Indication: CHRONIC MYELOID LEUKAEMIA
     Dosage: UNK
     Route: 065
     Dates: start: 2015
  3. GLIVEC [Suspect]
     Active Substance: IMATINIB MESYLATE
     Dosage: 400 MG, QD (8 MONTHS AGO)
     Route: 048
     Dates: end: 202001
  4. LOSARTAN. [Suspect]
     Active Substance: LOSARTAN
     Indication: HYPERTENSION
     Dosage: 1 MG, QD (1 MONTH AGO)
     Route: 048
  5. GLIVEC [Suspect]
     Active Substance: IMATINIB MESYLATE
     Dosage: 400 MG, QD
     Route: 048

REACTIONS (11)
  - Product substitution issue [Unknown]
  - Chronic myeloid leukaemia [Unknown]
  - Cytogenetic analysis abnormal [Unknown]
  - Hypertension [Unknown]
  - Diarrhoea [Unknown]
  - Myalgia [Recovered/Resolved]
  - Malignant neoplasm progression [Unknown]
  - Bone pain [Unknown]
  - Malaise [Unknown]
  - Headache [Unknown]
  - Ill-defined disorder [Unknown]

NARRATIVE: CASE EVENT DATE: 2015
